FAERS Safety Report 21789858 (Version 1)
Quarter: 2022Q4

REPORT INFORMATION
  Report Type: Spontaneous
  Country: CN (occurrence: CN)
  Receive Date: 20221228
  Receipt Date: 20221228
  Transmission Date: 20230113
  Serious: Yes (Other)
  Sender: FDA-Public Use
  Company Number: CN-PFIZER INC-PV202200131014

PATIENT
  Age: 62 Year
  Sex: Male
  Weight: 75 kg

DRUGS (3)
  1. CYTARABINE [Suspect]
     Active Substance: CYTARABINE
     Indication: Non-Hodgkin^s lymphoma
     Dosage: 1800 MG, 1X/DAY (Q12H(AS REPORTED))
     Route: 041
     Dates: start: 20221126, end: 20221127
  2. METHOTREXATE SODIUM [Suspect]
     Active Substance: METHOTREXATE SODIUM
     Indication: Non-Hodgkin^s lymphoma
     Dosage: 6300 MG, 1X/DAY
     Route: 041
     Dates: start: 20221125, end: 20221125
  3. RITUXIMAB [Suspect]
     Active Substance: RITUXIMAB
     Indication: Non-Hodgkin^s lymphoma
     Dosage: 0.6 G, 1X/DAY
     Route: 041
     Dates: start: 20221124, end: 20221124

REACTIONS (3)
  - Leukoplakia oral [Recovering/Resolving]
  - Pharyngeal leukoplakia [Recovering/Resolving]
  - Mouth ulceration [Recovering/Resolving]

NARRATIVE: CASE EVENT DATE: 20221128
